FAERS Safety Report 12525043 (Version 1)
Quarter: 2016Q3

REPORT INFORMATION
  Report Type: Report from Study
  Country: BR (occurrence: BR)
  Receive Date: 20160704
  Receipt Date: 20160704
  Transmission Date: 20161109
  Serious: Yes (Disabling, Other)
  Sender: FDA-Public Use
  Company Number: BR-ABBVIE-16K-020-1662840-00

PATIENT
  Sex: Female
  Weight: 108 kg

DRUGS (9)
  1. METOFORMIN [Concomitant]
     Indication: DIABETES MELLITUS
     Route: 048
     Dates: start: 1996
  2. ACETYLSALICYLIC ACID [Concomitant]
     Active Substance: ASPIRIN
     Indication: ANTICOAGULANT THERAPY
     Route: 048
     Dates: start: 2011
  3. GLIBENCLAMIDE [Concomitant]
     Active Substance: GLYBURIDE
     Indication: DIABETES MELLITUS
     Route: 048
     Dates: start: 1996
  4. HUMIRA [Suspect]
     Active Substance: ADALIMUMAB
     Indication: RHEUMATOID ARTHRITIS
     Route: 058
     Dates: start: 20130101
  5. SPIRONOLACTONE. [Concomitant]
     Active Substance: SPIRONOLACTONE
     Indication: RENAL DISORDER
     Route: 048
     Dates: start: 1996
  6. OMEPRAZOLE. [Concomitant]
     Active Substance: OMEPRAZOLE
     Indication: GASTRIC DISORDER
     Route: 048
     Dates: start: 1996
  7. LOSARTAN. [Concomitant]
     Active Substance: LOSARTAN
     Indication: DISCOMFORT
     Route: 048
     Dates: start: 2013
  8. DIURIX [Concomitant]
     Active Substance: FUROSEMIDE
     Indication: ANXIETY
     Route: 048
     Dates: start: 2013
  9. SINVASTACOR [Concomitant]
     Active Substance: SIMVASTATIN
     Indication: BLOOD CHOLESTEROL
     Route: 048
     Dates: start: 2012

REACTIONS (11)
  - Chondropathy [Unknown]
  - Mobility decreased [Unknown]
  - Depression [Recovered/Resolved]
  - Fall [Recovered/Resolved]
  - Dysstasia [Recovering/Resolving]
  - Joint swelling [Unknown]
  - Influenza [Recovering/Resolving]
  - Joint injury [Unknown]
  - Memory impairment [Not Recovered/Not Resolved]
  - Catarrh [Recovering/Resolving]
  - Arthralgia [Unknown]

NARRATIVE: CASE EVENT DATE: 2013
